FAERS Safety Report 8894350 (Version 1)
Quarter: 2012Q4

REPORT INFORMATION
  Report Type: 
  Country: US (occurrence: US)
  Receive Date: 20121108
  Receipt Date: 20121108
  Transmission Date: 20130627
  Serious: Yes (Other)
  Sender: FDA-Public Use
  Company Number: US-MERCK-1205USA05138

PATIENT
  Age: 76 Year
  Sex: Male
  Weight: 85.26 kg

DRUGS (9)
  1. ZETIA [Suspect]
     Indication: HYPERLIPIDAEMIA
     Dosage: 10 mg, qd
     Route: 048
     Dates: start: 20120324, end: 201205
  2. ZETIA [Suspect]
     Indication: DYSLIPIDAEMIA
  3. ASPIRIN [Concomitant]
     Dosage: 81 mg, qam
  4. LIPITOR [Concomitant]
     Dosage: 80 mg, q4h
  5. METFORMIN [Concomitant]
     Dosage: 500 mg, bid
  6. NOVOLOG [Concomitant]
  7. LEVEMIR [Concomitant]
  8. LISINOPRIL [Concomitant]
     Dosage: 5 mg, qd
  9. FLONASE [Concomitant]

REACTIONS (3)
  - Pancreatitis necrotising [Unknown]
  - Pancreatitis necrotising [Unknown]
  - Blood glucose increased [Recovered/Resolved]
